FAERS Safety Report 16044604 (Version 1)
Quarter: 2019Q1

REPORT INFORMATION
  Report Type: Spontaneous
  Country: IE (occurrence: IE)
  Receive Date: 20190306
  Receipt Date: 20190306
  Transmission Date: 20190418
  Serious: Yes (Death)
  Sender: FDA-Public Use
  Company Number: IE-AUROBINDO-AUR-APL-2018-028602

PATIENT
  Age: 24 Year
  Sex: Female

DRUGS (16)
  1. PROPOFOL. [Concomitant]
     Active Substance: PROPOFOL
     Indication: SEIZURE
     Dosage: UNK
     Route: 042
  2. PHENYTOIN. [Concomitant]
     Active Substance: PHENYTOIN
     Indication: STATUS EPILEPTICUS
     Dosage: 300 MILLIGRAM, ONCE A DAY, 100 MG, THREE TIMES A DAY (TDS)
     Route: 065
  3. MEROPENEM. [Suspect]
     Active Substance: MEROPENEM
     Indication: SEPSIS
     Dosage: UNK
     Route: 065
  4. SODIUM VALPROATE [Interacting]
     Active Substance: VALPROATE SODIUM
     Indication: STATUS EPILEPTICUS
     Dosage: UNK, DAILY (INCREASED DAILY VPA DOSE) ()
     Route: 040
  5. SODIUM VALPROATE [Interacting]
     Active Substance: VALPROATE SODIUM
     Dosage: 600 MILLIGRAM, 8 PER HOUR
  6. THIOPENTAL SODIUM. [Concomitant]
     Active Substance: THIOPENTAL SODIUM
     Indication: SEIZURE
     Dosage: UNK
     Route: 065
  7. AZTREONAM. [Concomitant]
     Active Substance: AZTREONAM
     Indication: SEPSIS
     Dosage: UNK
     Route: 065
  8. LEVETIRACETAM ACCORD [Concomitant]
     Active Substance: LEVETIRACETAM
     Dosage: 1500 UNK,12 PER HOUR
  9. LACOSAMIDE. [Concomitant]
     Active Substance: LACOSAMIDE
     Dosage: 100 UNK,12 PER HOUR
  10. LEVETIRACETAM ACCORD [Concomitant]
     Active Substance: LEVETIRACETAM
     Indication: STATUS EPILEPTICUS
     Dosage: 3000 MILLIGRAM, 1500 MG, TWICE A DAY (BD)
     Route: 065
  11. CASPOFUNGIN [Suspect]
     Active Substance: CASPOFUNGIN
     Indication: DEVICE RELATED SEPSIS
     Dosage: UNK
     Route: 065
  12. PIPERACILLIN AND TAZOBACTAM [Suspect]
     Active Substance: PIPERACILLIN SODIUM\TAZOBACTAM SODIUM
     Indication: DEVICE RELATED SEPSIS
     Dosage: UNK
     Route: 065
  13. SODIUM VALPROATE [Interacting]
     Active Substance: VALPROATE SODIUM
     Dosage: 1800 MILLIGRAM, ONCE A DAY, 600 MG, THREE TIMES A DAY (TDS)
     Route: 040
  14. MIDAZOLAM [Interacting]
     Active Substance: MIDAZOLAM HYDROCHLORIDE
     Indication: SEIZURE
     Dosage: 10 MILLIGRAM, 10 MG PER HOUR
     Route: 042
  15. LACOSAMIDE. [Concomitant]
     Active Substance: LACOSAMIDE
     Indication: STATUS EPILEPTICUS
     Dosage: 200 MILLIGRAM, ONCE A DAY, 100 MG, TWICE A DAY (BD)
     Route: 065
  16. VANCOMYCIN [Suspect]
     Active Substance: VANCOMYCIN
     Indication: DEVICE RELATED SEPSIS
     Dosage: UNK
     Route: 065

REACTIONS (3)
  - Drug interaction [Not Recovered/Not Resolved]
  - Drug level decreased [Not Recovered/Not Resolved]
  - Drug ineffective [Fatal]
